FAERS Safety Report 23968047 (Version 1)
Quarter: 2024Q2

REPORT INFORMATION
  Report Type: Spontaneous
  Country: CN (occurrence: CN)
  Receive Date: 20240612
  Receipt Date: 20240612
  Transmission Date: 20240715
  Serious: Yes (Other)
  Sender: FDA-Public Use
  Company Number: CN-SA-SAC20240605001516

PATIENT
  Age: 61 Year
  Sex: Female
  Weight: 72 kg

DRUGS (4)
  1. TAXOTERE [Suspect]
     Active Substance: DOCETAXEL
     Indication: Breast cancer
     Dosage: 130 MG, QD
     Route: 041
     Dates: start: 20240117, end: 20240117
  2. CYCLOPHOSPHAMIDE [Suspect]
     Active Substance: CYCLOPHOSPHAMIDE
     Indication: Breast cancer
     Dosage: 1000 MG, QD
     Route: 042
     Dates: start: 20240117, end: 20240117
  3. SODIUM CHLORIDE [Concomitant]
     Active Substance: SODIUM CHLORIDE
     Dosage: 40 ML
     Route: 042
     Dates: start: 20240117, end: 20240117
  4. SODIUM CHLORIDE [Concomitant]
     Active Substance: SODIUM CHLORIDE
     Dosage: 130 MG
     Route: 041
     Dates: start: 20240117, end: 20240117

REACTIONS (2)
  - White blood cell count decreased [Recovered/Resolved]
  - Agranulocytosis [Recovered/Resolved]

NARRATIVE: CASE EVENT DATE: 20240124
